FAERS Safety Report 13156575 (Version 1)
Quarter: 2017Q1

REPORT INFORMATION
  Report Type: Spontaneous
  Country: US (occurrence: US)
  Receive Date: 20170126
  Receipt Date: 20170126
  Transmission Date: 20170428
  Serious: No
  Sender: FDA-Public Use
  Company Number: US-009507513-1701USA010175

PATIENT
  Sex: Female
  Weight: 112.2 kg

DRUGS (1)
  1. ETONOGESTREL IMPLANT- UNKNOWN [Suspect]
     Active Substance: ETONOGESTREL
     Indication: CONTRACEPTION
     Dosage: 1 ROD EVERY 3 YEARS
     Route: 059
     Dates: start: 2012, end: 20150826

REACTIONS (4)
  - Mood altered [Unknown]
  - Menorrhagia [Unknown]
  - Menstruation irregular [Unknown]
  - Infertility [Unknown]
